FAERS Safety Report 6501661-3 (Version None)
Quarter: 2009Q4

REPORT INFORMATION
  Report Type: 
  Country: None (occurrence: None)
  Receive Date: 20091127
  Receipt Date: 20081006
  Transmission Date: 20100525
  Serious: Yes (Disabling)
  Sender: FDA-Public Use
  Company Number: WAES 0809USA01379

PATIENT
  Age: 37 Year
  Sex: Female
  Weight: 51.7101 kg

DRUGS (3)
  1. FOSAMAX [Suspect]
     Indication: OSTEOPOROSIS
     Dosage: 35 MG/WKY/PO
     Route: 048
     Dates: start: 20080717, end: 20080725
  2. ADDERALL TABLETS [Concomitant]
  3. DEPO-PROVERA [Concomitant]

REACTIONS (4)
  - ARTHRALGIA [None]
  - BONE PAIN [None]
  - INSOMNIA [None]
  - MUSCULOSKELETAL PAIN [None]
